FAERS Safety Report 9181651 (Version 2)
Quarter: 2013Q1

REPORT INFORMATION
  Report Type: Spontaneous
  Country: US (occurrence: US)
  Receive Date: 20130322
  Receipt Date: 20130322
  Transmission Date: 20140127
  Serious: Yes (Other)
  Sender: FDA-Public Use
  Company Number: US-JNJFOC-2008025219

PATIENT
  Sex: Female

DRUGS (3)
  1. MOTRIN [Suspect]
     Indication: PRODUCT USED FOR UNKNOWN INDICATION
  2. CHANTIX [Suspect]
     Indication: PRODUCT USED FOR UNKNOWN INDICATION
  3. DARVOCET [Concomitant]

REACTIONS (3)
  - Chest pain [Unknown]
  - Drug ineffective [Unknown]
  - Electrocardiogram abnormal [Unknown]
